FAERS Safety Report 11648983 (Version 2)
Quarter: 2015Q4

REPORT INFORMATION
  Report Type: Spontaneous
  Country: US (occurrence: US)
  Receive Date: 20151021
  Receipt Date: 20151023
  Transmission Date: 20160304
  Serious: Yes (Death)
  Sender: FDA-Public Use
  Company Number: PHEH2015US020851

PATIENT
  Sex: Female

DRUGS (1)
  1. HYCAMTIN [Suspect]
     Active Substance: TOPOTECAN HYDROCHLORIDE
     Indication: RECTOSIGMOID CANCER
     Dosage: 4.25 MG (1-5 DAYS EVERY 21 CYCLE)
     Route: 065
     Dates: start: 20150508

REACTIONS (2)
  - Off label use [Unknown]
  - Death [Fatal]
